FAERS Safety Report 13576402 (Version 1)
Quarter: 2017Q2

REPORT INFORMATION
  Report Type: Spontaneous
  Country: FR (occurrence: FR)
  Receive Date: 20170524
  Receipt Date: 20170524
  Transmission Date: 20170830
  Serious: Yes (Life-Threatening, Hospitalization, Other)
  Sender: FDA-Public Use
  Company Number: FR-VIIV HEALTHCARE LIMITED-FR2017GSK055042

PATIENT
  Age: 55 Year
  Sex: Male
  Weight: 73 kg

DRUGS (4)
  1. STILNOX [Concomitant]
     Active Substance: ZOLPIDEM TARTRATE
     Dosage: ON DEMAND
     Route: 048
  2. UVEDOSE [Concomitant]
     Active Substance: CHOLECALCIFEROL
     Dosage: 1 AMPOULE EVERY 3 MONTHS
     Route: 048
  3. ATARAX [Concomitant]
     Active Substance: HYDROXYZINE HYDROCHLORIDE
     Route: 048
  4. TRIUMEQ [Suspect]
     Active Substance: ABACAVIR SULFATE\DOLUTEGRAVIR SODIUM\LAMIVUDINE
     Indication: HIV INFECTION
     Dosage: 1 UNK, UNK
     Route: 048
     Dates: start: 20151013

REACTIONS (3)
  - Pulmonary embolism [Unknown]
  - Depression [Unknown]
  - Suicide attempt [Not Recovered/Not Resolved]

NARRATIVE: CASE EVENT DATE: 20160601
